FAERS Safety Report 17780124 (Version 3)
Quarter: 2020Q3

REPORT INFORMATION
  Report Type: Spontaneous
  Country: JP (occurrence: JP)
  Receive Date: 20200514
  Receipt Date: 20200723
  Transmission Date: 20201102
  Serious: Yes (Death, Hospitalization, Other)
  Sender: FDA-Public Use
  Company Number: JP-009507513-2005JPN000303J

PATIENT
  Age: 70 Year
  Sex: Male
  Weight: 58 kg

DRUGS (9)
  1. KEYTRUDA [Suspect]
     Active Substance: PEMBROLIZUMAB
     Indication: HEAD AND NECK CANCER
     Dosage: 200 MILLIGRAM, Q3W
     Route: 041
     Dates: start: 20200401, end: 20200401
  2. THYRADIN S [Concomitant]
     Active Substance: LEVOTHYROXINE SODIUM
     Indication: HYPOTHYROIDISM
     Dosage: 50 MICROGRAM, QD
     Route: 048
     Dates: start: 20200304, end: 20200410
  3. TRANEXAMIC ACID. [Concomitant]
     Active Substance: TRANEXAMIC ACID
     Indication: TUMOUR HAEMORRHAGE
     Dosage: 750 MILLIGRAM, TID
     Route: 048
     Dates: start: 20200324, end: 20200410
  4. MAGMITT [Concomitant]
     Active Substance: MAGNESIUM OXIDE
     Indication: CONSTIPATION
     Dosage: 660 MILLIGRAM, TID
     Route: 048
     Dates: start: 20200301, end: 20200329
  5. CARBAZOCHROME SODIUM SULFONATE [Concomitant]
     Active Substance: CARBAZOCHROME SODIUM SULFONATE
     Indication: TUMOUR HAEMORRHAGE
     Dosage: 30 MILLIGRAM, TID
     Route: 048
     Dates: start: 20200324, end: 20200410
  6. RACOL?NF [Concomitant]
     Indication: DYSPEPSIA
     Dosage: 400 MILLIGRAM, TID
     Route: 048
     Dates: start: 20200328, end: 20200410
  7. ZOLEDRONIC ACID HYDRATE [Concomitant]
     Active Substance: ZOLEDRONIC ACID
     Indication: HYPERCALCAEMIA
     Dosage: 4MG/5ML/WEEK
     Route: 042
     Dates: start: 20200407, end: 20200407
  8. FUROSEMIDE. [Concomitant]
     Active Substance: FUROSEMIDE
     Indication: HYPERKALAEMIA
     Dosage: 10 MILLIGRAM, BID
     Route: 042
     Dates: start: 20200331, end: 20200410
  9. ELCITONIN [Concomitant]
     Active Substance: ELCATONIN
     Indication: HYPERCALCAEMIA
     Dosage: 40 UNITS, BID
     Route: 042
     Dates: start: 20200325, end: 20200410

REACTIONS (5)
  - Malignant neoplasm progression [Unknown]
  - Cardiac failure [Unknown]
  - Immune-mediated pneumonitis [Fatal]
  - Infection [Unknown]
  - Chronic obstructive pulmonary disease [Unknown]

NARRATIVE: CASE EVENT DATE: 20200409
